FAERS Safety Report 13859661 (Version 1)
Quarter: 2017Q3

REPORT INFORMATION
  Report Type: Spontaneous
  Country: US (occurrence: US)
  Receive Date: 20170811
  Receipt Date: 20170811
  Transmission Date: 20171127
  Serious: No
  Sender: FDA-Public Use
  Company Number: US-ARALEZ PHARMACEUTICALS R+D INC.-2017-ARA-TOP-000064

PATIENT
  Sex: Female
  Weight: 56.69 kg

DRUGS (4)
  1. LYNPARZA [Concomitant]
     Active Substance: OLAPARIB
     Indication: ENDOMETRIAL CANCER
     Dosage: 200 MG, BID
     Route: 048
     Dates: start: 20170717, end: 20170731
  2. OXYCONTIN [Concomitant]
     Active Substance: OXYCODONE HYDROCHLORIDE
     Indication: BACK PAIN
     Dosage: 40 MG, TID
  3. AMLODIPINE [Concomitant]
     Active Substance: AMLODIPINE BESYLATE
     Indication: BLOOD PRESSURE MEASUREMENT
     Dosage: UNK
     Route: 048
  4. METOPROLOL SUCCINATE. [Suspect]
     Active Substance: METOPROLOL SUCCINATE
     Indication: BLOOD PRESSURE MANAGEMENT
     Dosage: 50 MG, BID
     Route: 048
     Dates: start: 2016

REACTIONS (1)
  - Drug dose omission [Not Recovered/Not Resolved]
